FAERS Safety Report 4850780-6 (Version None)
Quarter: 2005Q4

REPORT INFORMATION
  Report Type: 
  Country: None (occurrence: None)
  Receive Date: 20051212
  Receipt Date: 20051130
  Transmission Date: 20060501
  Serious: Yes (Hospitalization)
  Sender: FDA-Public Use
  Company Number: NZ-AVENTIS-200514764EU

PATIENT
  Age: 69 Year
  Sex: Male

DRUGS (2)
  1. CLEXANE [Suspect]
     Indication: ACUTE CORONARY SYNDROME
  2. ASPIRIN [Concomitant]
     Indication: ACUTE CORONARY SYNDROME

REACTIONS (6)
  - ASTHENIA [None]
  - HYPOAESTHESIA [None]
  - PNEUMONIA [None]
  - QUADRIPLEGIA [None]
  - SEPSIS [None]
  - SPINAL HAEMATOMA [None]
